FAERS Safety Report 9086350 (Version 1)
Quarter: 2013Q1

REPORT INFORMATION
  Report Type: Spontaneous
  Country: FR (occurrence: FR)
  Receive Date: 20130131
  Receipt Date: 20130131
  Transmission Date: 20140127
  Serious: Yes (Hospitalization)
  Sender: FDA-Public Use
  Company Number: FR-PFIZER INC-2013033706

PATIENT
  Age: 39 Year
  Sex: Female

DRUGS (2)
  1. LYRICA [Suspect]
     Dosage: 50 MG, 2X/DAY
     Route: 048
     Dates: start: 20121127
  2. LAMICTAL [Suspect]
     Dosage: UNK
     Route: 048
     Dates: start: 20121024, end: 20121127

REACTIONS (2)
  - Acute generalised exanthematous pustulosis [Unknown]
  - Drug reaction with eosinophilia and systemic symptoms [Recovered/Resolved]
